FAERS Safety Report 11364476 (Version 1)
Quarter: 2015Q3

REPORT INFORMATION
  Report Type: Spontaneous
  Country: US (occurrence: None)
  Receive Date: 20150810
  Receipt Date: 20150810
  Transmission Date: 20151125
  Serious: No
  Sender: FDA-Public Use
  Company Number: None

PATIENT
  Age: 28 Year
  Sex: Female
  Weight: 84.37 kg

DRUGS (2)
  1. ADVIL [Concomitant]
     Active Substance: IBUPROFEN
  2. FLAGYL [Suspect]
     Active Substance: METRONIDAZOLE\METRONIDAZOLE HYDROCHLORIDE
     Indication: VAGINAL INFECTION
     Dosage: 1  TWICE DAILY  TAKEN BY MOUTH
     Route: 048
     Dates: start: 20150801, end: 20150807

REACTIONS (12)
  - Pain [None]
  - Photophobia [None]
  - Headache [None]
  - Eye pain [None]
  - Nightmare [None]
  - Chills [None]
  - Vision blurred [None]
  - Lethargy [None]
  - Nausea [None]
  - Cold sweat [None]
  - Confusional state [None]
  - Somnolence [None]

NARRATIVE: CASE EVENT DATE: 20150806
